FAERS Safety Report 7816285-5 (Version None)
Quarter: 2011Q4

REPORT INFORMATION
  Report Type: 
  Country: None (occurrence: None)
  Receive Date: 20111016
  Receipt Date: 20110922
  Transmission Date: 20120403
  Serious: Yes (Death)
  Sender: FDA-Public Use
  Company Number: JP-ROCHE-1000643

PATIENT
  Sex: Female

DRUGS (19)
  1. ISODINE [Concomitant]
     Route: 049
     Dates: start: 20091002
  2. PYDOXAL [Concomitant]
     Route: 048
     Dates: start: 20090730, end: 20100204
  3. XYLOCAINE [Concomitant]
     Route: 065
     Dates: start: 20091221, end: 20091221
  4. SELBEX [Concomitant]
     Route: 048
     Dates: start: 20090730, end: 20091226
  5. ATARAX [Concomitant]
     Route: 065
     Dates: start: 20091221, end: 20091221
  6. LOXONIN [Concomitant]
     Route: 048
     Dates: start: 20090730, end: 20091226
  7. PRAVASTATIN SODIUM [Concomitant]
     Route: 048
     Dates: start: 20091023, end: 20091105
  8. DECADRON [Concomitant]
     Route: 048
     Dates: start: 20090730, end: 20091228
  9. LENDORMIN [Concomitant]
     Route: 048
     Dates: start: 20091001, end: 20100225
  10. LEVOTHYROXINE SODIUM [Concomitant]
     Route: 048
  11. XELODA [Suspect]
     Indication: BREAST CANCER METASTATIC
     Route: 048
     Dates: start: 20090730, end: 20100107
  12. HYALEIN [Concomitant]
     Route: 047
     Dates: start: 20091203, end: 20100113
  13. FAMOTIDINE [Concomitant]
     Route: 048
     Dates: start: 20090820
  14. KERATIN [Concomitant]
     Route: 003
     Dates: start: 20090730
  15. DOCETAXEL [Suspect]
     Indication: BREAST CANCER METASTATIC
     Route: 041
     Dates: start: 20090730, end: 20091224
  16. DEXAMETHASONE SODIUM PHOSPHATE [Concomitant]
     Route: 065
     Dates: start: 20090730, end: 20091228
  17. PENTAZOCINE LACTATE [Concomitant]
     Route: 065
     Dates: start: 20091221, end: 20091221
  18. ZOMETA [Concomitant]
     Route: 041
     Dates: start: 20090730, end: 20100114
  19. ZOLPIDEM [Concomitant]
     Route: 048
     Dates: start: 20090820, end: 20090923

REACTIONS (14)
  - DISEASE PROGRESSION [None]
  - LACRIMATION INCREASED [None]
  - ALOPECIA [None]
  - NEUTROPHIL COUNT DECREASED [None]
  - NAIL DISORDER [None]
  - GENERALISED OEDEMA [None]
  - PERIPHERAL SENSORY NEUROPATHY [None]
  - WHITE BLOOD CELL COUNT DECREASED [None]
  - STOMATITIS [None]
  - WEIGHT INCREASED [None]
  - FATIGUE [None]
  - DYSGEUSIA [None]
  - ABDOMINAL PAIN UPPER [None]
  - ECZEMA [None]
